FAERS Safety Report 12342501 (Version 1)
Quarter: 2016Q2

REPORT INFORMATION
  Report Type: Spontaneous
  Country: FR (occurrence: FR)
  Receive Date: 20160506
  Receipt Date: 20160506
  Transmission Date: 20160815
  Serious: Yes (Hospitalization, Other)
  Sender: FDA-Public Use
  Company Number: FR-ASTELLAS-2016US017192

PATIENT
  Sex: Male

DRUGS (4)
  1. OLMETEC [Concomitant]
     Active Substance: OLMESARTAN MEDOXOMIL
     Indication: PROSTATE EXAMINATION ABNORMAL
     Dosage: 20 MG, AT NIGHT
     Route: 065
  2. VESICARE [Suspect]
     Active Substance: SOLIFENACIN SUCCINATE
     Indication: PROSTATE EXAMINATION ABNORMAL
     Dosage: 1 DF (0.5 MG), EVERY OTHER MONTH
     Route: 065
  3. LERCANIDIPINE [Concomitant]
     Active Substance: LERCANIDIPINE
     Indication: PROSTATE EXAMINATION ABNORMAL
     Dosage: 1 DF (20 MG),IN THE MORNING
     Route: 065
  4. OMIX OCAS [Suspect]
     Active Substance: TAMSULOSIN HYDROCHLORIDE
     Indication: PROSTATE EXAMINATION ABNORMAL
     Dosage: 0.4 MG, ONCE DAILY (IN THE EVENING)
     Route: 065

REACTIONS (18)
  - Blood potassium increased [Unknown]
  - Anaemia [Unknown]
  - Weight decreased [Unknown]
  - Nasal dryness [Unknown]
  - Drug prescribing error [Unknown]
  - Renal failure [Unknown]
  - Haemorrhage urinary tract [Unknown]
  - Fatigue [Unknown]
  - Somnolence [Unknown]
  - Cystitis noninfective [Unknown]
  - Nephritis [Unknown]
  - Urinary retention [Unknown]
  - Dry mouth [Unknown]
  - Dry skin [Unknown]
  - Pruritus [Unknown]
  - Diarrhoea [Unknown]
  - Off label use [Unknown]
  - Urinary tract infection [Unknown]
